FAERS Safety Report 7600159 (Version 3)
Quarter: 2013Q3

REPORT INFORMATION
  Report Type: Spontaneous
  Country: US (occurrence: US)
  Receive Date: 20100921
  Receipt Date: 20130816
  Transmission Date: 20140515
  Serious: Yes (Hospitalization)
  Sender: FDA-Public Use
  Company Number: US-ELI_LILLY_AND_COMPANY-US201009004479

PATIENT
  Age: 49 Year
  Sex: Female

DRUGS (3)
  1. DULOXETINE HYDROCHLORIDE [Suspect]
     Dosage: 30 MG, DAILY (1/D)
  2. CLONAZEPAM [Concomitant]
  3. ACETAMINOPHEN [Concomitant]

REACTIONS (4)
  - Hepatic necrosis [Recovered/Resolved]
  - Liver injury [Recovered/Resolved]
  - Thrombocytopenia [Recovered/Resolved]
  - Hepatic fibrosis [Recovered/Resolved]
